FAERS Safety Report 8164025 (Version 4)
Quarter: 2016Q3

REPORT INFORMATION
  Report Type: Spontaneous
  Country: US (occurrence: US)
  Receive Date: 20110930
  Receipt Date: 20160804
  Transmission Date: 20161109
  Serious: Yes (Life-Threatening, Other)
  Sender: FDA-Public Use
  Company Number: US-ASTRAZENECA-2010SE26308

PATIENT
  Age: 84 Year
  Sex: Female

DRUGS (5)
  1. NEXIUM [Interacting]
     Active Substance: ESOMEPRAZOLE MAGNESIUM
     Route: 048
  2. UNSPECIFIED [Concomitant]
     Active Substance: UNSPECIFIED INGREDIENT
  3. OTHER MEDICATIONS [Interacting]
     Active Substance: UNSPECIFIED INGREDIENT
     Route: 065
  4. ARIMIDEX [Suspect]
     Active Substance: ANASTROZOLE
     Indication: BREAST CANCER RECURRENT
     Route: 048
  5. CRESTOR [Suspect]
     Active Substance: ROSUVASTATIN CALCIUM
     Dosage: 20.0MG UNKNOWN
     Route: 048

REACTIONS (10)
  - Drug interaction [Unknown]
  - Weight increased [Unknown]
  - Bronchitis [Unknown]
  - Pneumonia [Unknown]
  - Myocardial infarction [Unknown]
  - Breast cancer [Unknown]
  - Neoplasm malignant [Unknown]
  - Malaise [Unknown]
  - Weight decreased [Unknown]
  - Barrett^s oesophagus [Unknown]
